FAERS Safety Report 13284514 (Version 1)
Quarter: 2017Q1

REPORT INFORMATION
  Report Type: Spontaneous
  Country: DK (occurrence: DK)
  Receive Date: 20170301
  Receipt Date: 20170301
  Transmission Date: 20170428
  Serious: Yes (Death, Hospitalization)
  Sender: FDA-Public Use
  Company Number: DK-INGENUS PHARMACEUTICALS NJ, LLC-ING201702-000086

PATIENT
  Age: 84 Year
  Sex: Male
  Weight: 98 kg

DRUGS (9)
  1. MIRTAZAPINE. [Suspect]
     Active Substance: MIRTAZAPINE
  2. OXAZEPAM. [Suspect]
     Active Substance: OXAZEPAM
  3. IVABRADINE [Suspect]
     Active Substance: IVABRADINE
  4. NIFEDIPINE. [Suspect]
     Active Substance: NIFEDIPINE
  5. METOPROLOL. [Suspect]
     Active Substance: METOPROLOL
  6. SIMVASTATIN. [Suspect]
     Active Substance: SIMVASTATIN
  7. PARACETAMOL [Suspect]
     Active Substance: ACETAMINOPHEN
  8. TRANDOLAPRIL. [Suspect]
     Active Substance: TRANDOLAPRIL
  9. CARISOPRODOL AND ASPIRIN [Suspect]
     Active Substance: ASPIRIN\CARISOPRODOL

REACTIONS (9)
  - Completed suicide [Fatal]
  - Hypotension [Unknown]
  - Mental status changes [Unknown]
  - Intentional overdose [Fatal]
  - Bezoar [Fatal]
  - Toxicity to various agents [Fatal]
  - Loss of consciousness [Unknown]
  - Oesophageal obstruction [Fatal]
  - Pneumonia aspiration [Unknown]
